FAERS Safety Report 4696904-5 (Version None)
Quarter: 2005Q2

REPORT INFORMATION
  Report Type: 
  Country: None (occurrence: None)
  Receive Date: 20050622
  Receipt Date: 20050613
  Transmission Date: 20051028
  Serious: Yes (Other)
  Sender: FDA-Public Use
  Company Number: US-JNJFOC-20050502545

PATIENT
  Sex: Female
  Weight: 82.56 kg

DRUGS (2)
  1. DOXIL [Suspect]
     Indication: BREAST CANCER
     Dosage: 2 CYCLES
     Route: 042
  2. HERCEPTIN [Concomitant]
     Indication: BREAST CANCER
     Dosage: 2 DOSES
     Route: 042

REACTIONS (2)
  - HYPERTENSION [None]
  - INFUSION RELATED REACTION [None]
